FAERS Safety Report 5337601-2 (Version None)
Quarter: 2007Q2

REPORT INFORMATION
  Report Type: 
  Country: None (occurrence: None)
  Receive Date: 20070524
  Receipt Date: 20070515
  Transmission Date: 20071010
  Serious: Yes (Hospitalization)
  Sender: FDA-Public Use
  Company Number: 2007BI010704

PATIENT
  Age: 42 Year
  Sex: Female

DRUGS (1)
  1. AVONEX [Suspect]
     Indication: MULTIPLE SCLEROSIS
     Dosage: 30 UG;QW;IM
     Route: 030
     Dates: start: 20021121

REACTIONS (5)
  - ANXIETY [None]
  - DEPRESSION [None]
  - INTERVERTEBRAL DISC DEGENERATION [None]
  - SLEEP DISORDER [None]
  - SUPRAVENTRICULAR TACHYCARDIA [None]
